FAERS Safety Report 14118754 (Version 1)
Quarter: 2017Q4

REPORT INFORMATION
  Report Type: Report from Study
  Country: RO (occurrence: RO)
  Receive Date: 20171024
  Receipt Date: 20171024
  Transmission Date: 20180321
  Serious: Yes (Other)
  Sender: FDA-Public Use
  Company Number: RO-KADMON PHARMACEUTICALS, LLC-KAD201710-001124

PATIENT

DRUGS (6)
  1. RIBAVIRIN. [Suspect]
     Active Substance: RIBAVIRIN
     Indication: HEPATITIS C
  2. VIEKIRAX 12.5 MG/75 MG/50 MG [Suspect]
     Active Substance: OMBITASVIR\PARITAPREVIR\RITONAVIR
     Indication: HEPATITIS C
     Dosage: 25 MG/150 MG/100 MG/DAY IN A SINGLE DAILY DOSE
  3. VIEKIRAX 12.5 MG/75 MG/50 MG [Suspect]
     Active Substance: OMBITASVIR\PARITAPREVIR\RITONAVIR
     Indication: HEPATIC CIRRHOSIS
  4. EXVIERA 250 MG [Suspect]
     Active Substance: DASABUVIR
     Indication: HEPATITIS C
     Dosage: 500 MG/DAY, DIVIDED IN TWO DAILY DOSES
  5. RIBAVIRIN. [Suspect]
     Active Substance: RIBAVIRIN
     Indication: HEPATIC CIRRHOSIS
  6. EXVIERA 250 MG [Suspect]
     Active Substance: DASABUVIR
     Indication: HEPATIC CIRRHOSIS

REACTIONS (2)
  - Ascites [Unknown]
  - Jaundice [Unknown]
